FAERS Safety Report 11528673 (Version 2)
Quarter: 2016Q1

REPORT INFORMATION
  Report Type: Spontaneous
  Country: KR (occurrence: KR)
  Receive Date: 20150921
  Receipt Date: 20160201
  Transmission Date: 20160525
  Serious: Yes (Other)
  Sender: FDA-Public Use
  Company Number: PHHY2015KR112998

PATIENT
  Age: 88 Year
  Sex: Female

DRUGS (2)
  1. EXELON [Suspect]
     Active Substance: RIVASTIGMINE TARTRATE
     Indication: PRODUCT USED FOR UNKNOWN INDICATION
     Dosage: 3 MG, QD
     Route: 048
  2. EXELON PATCH [Suspect]
     Active Substance: RIVASTIGMINE
     Indication: PRODUCT USED FOR UNKNOWN INDICATION
     Dosage: 4.6 MG, UNK (PATCH 5 CM2)
     Route: 062

REACTIONS (8)
  - Decreased appetite [Unknown]
  - Tremor [Unknown]
  - Delirium [Unknown]
  - Insomnia [Unknown]
  - Seizure [Unknown]
  - Abnormal behaviour [Unknown]
  - Feeding disorder [Unknown]
  - Dyspepsia [Unknown]
